FAERS Safety Report 13192877 (Version 1)
Quarter: 2017Q1

REPORT INFORMATION
  Report Type: Spontaneous
  Country: US (occurrence: US)
  Receive Date: 20170207
  Receipt Date: 20170207
  Transmission Date: 20170428
  Serious: Yes (Hospitalization, Other)
  Sender: FDA-Public Use
  Company Number: US-GLAXOSMITHKLINE-US2017015610

PATIENT
  Age: 69 Year
  Sex: Male

DRUGS (4)
  1. FLOMAX [Suspect]
     Active Substance: TAMSULOSIN HYDROCHLORIDE
     Indication: PRODUCT USED FOR UNKNOWN INDICATION
  2. LAMICTAL XR [Suspect]
     Active Substance: LAMOTRIGINE
     Indication: ANXIETY
     Dosage: 400 MG, QD
     Route: 048
     Dates: start: 2013
  3. CLONAZEPAM. [Concomitant]
     Active Substance: CLONAZEPAM
  4. BACTRIM [Suspect]
     Active Substance: SULFAMETHOXAZOLE\TRIMETHOPRIM
     Indication: PRODUCT USED FOR UNKNOWN INDICATION

REACTIONS (12)
  - Dizziness [Not Recovered/Not Resolved]
  - Extra dose administered [Unknown]
  - Neck pain [Unknown]
  - Cardiac disorder [Unknown]
  - Bradycardia [Recovered/Resolved]
  - Medical procedure [Unknown]
  - Coordination abnormal [Not Recovered/Not Resolved]
  - Vision blurred [Not Recovered/Not Resolved]
  - Hypotension [Unknown]
  - Product use issue [Unknown]
  - Diplopia [Unknown]
  - Confusional state [Not Recovered/Not Resolved]

NARRATIVE: CASE EVENT DATE: 201701
